FAERS Safety Report 10069426 (Version 2)
Quarter: 2014Q2

REPORT INFORMATION
  Report Type: Spontaneous
  Country: GB (occurrence: GB)
  Receive Date: 20140410
  Receipt Date: 20140424
  Transmission Date: 20141212
  Serious: Yes (Other)
  Sender: FDA-Public Use
  Company Number: GB-JNJFOC-20140319473

PATIENT
  Sex: 0

DRUGS (6)
  1. IBUPROFEN [Suspect]
     Indication: PRODUCT USED FOR UNKNOWN INDICATION
     Route: 065
  2. METFORMIN HYDROCHLORIDE [Interacting]
     Indication: DIABETES MELLITUS
     Route: 065
  3. ELIQUIS [Interacting]
     Indication: KNEE ARTHROPLASTY
     Route: 065
  4. ELIQUIS [Interacting]
     Indication: KNEE ARTHROPLASTY
     Route: 065
  5. ELIQUIS [Interacting]
     Indication: HIP ARTHROPLASTY
     Route: 065
  6. ELIQUIS [Interacting]
     Indication: HIP ARTHROPLASTY
     Route: 065

REACTIONS (2)
  - Blood creatinine abnormal [Unknown]
  - Drug interaction [Unknown]
